FAERS Safety Report 5300209-9 (Version None)
Quarter: 2007Q2

REPORT INFORMATION
  Report Type: 
  Country: None (occurrence: None)
  Receive Date: 20070411
  Receipt Date: 20070402
  Transmission Date: 20071010
  Serious: Yes (Life-Threatening, Hospitalization)
  Sender: FDA-Public Use
  Company Number: 6030854

PATIENT
  Age: 67 Year
  Sex: Male

DRUGS (2)
  1. BISOPROLOL FUMARATE [Suspect]
     Indication: ANGINA UNSTABLE
     Dates: start: 19950430, end: 20051230
  2. CARDIRENE (ACETYLSALICYLATE LYSINE) [Concomitant]

REACTIONS (11)
  - APHONIA [None]
  - CHEST PAIN [None]
  - COUGH [None]
  - DYSURIA [None]
  - EYE IRRITATION [None]
  - HICCUPS [None]
  - HYPERHIDROSIS [None]
  - PRURITUS [None]
  - SNEEZING [None]
  - TREMOR [None]
  - YAWNING [None]
